FAERS Safety Report 4851593-1 (Version None)
Quarter: 2005Q4

REPORT INFORMATION
  Report Type: 
  Country: None (occurrence: None)
  Receive Date: 20051212
  Receipt Date: 20050706
  Transmission Date: 20060501
  Serious: Yes (Disabling, Other)
  Sender: FDA-Public Use
  Company Number: PHRM2005FR02068

PATIENT
  Age: 70 Year
  Sex: Female
  Weight: 61 kg

DRUGS (6)
  1. ZOMETA [Suspect]
     Indication: MULTIPLE MYELOMA
     Dosage: 4 MG, QMO
     Route: 042
     Dates: start: 20030801, end: 20050523
  2. DEXAMETHASONE [Suspect]
     Dosage: 40 MG FROM DAY 1 TO DAY 4
     Dates: start: 20030101
  3. THALIDOMIDE [Concomitant]
     Dates: start: 20040801
  4. ENDOXAN [Concomitant]
     Dates: start: 20030101
  5. IMMUNE GLOBULIN INTRAVENOUS (HUMAN) [Concomitant]
     Dosage: UNK, UNK
     Dates: start: 20040801
  6. NEORECORMON [Concomitant]
     Dates: start: 20040801

REACTIONS (3)
  - FUNGAL INFECTION [None]
  - OSTEONECROSIS [None]
  - TOOTH EXTRACTION [None]
